FAERS Safety Report 9797027 (Version 1)
Quarter: 2014Q1

REPORT INFORMATION
  Report Type: Spontaneous
  Country: US (occurrence: None)
  Receive Date: 20140102
  Receipt Date: 20140102
  Transmission Date: 20141002
  Serious: No
  Sender: FDA-Public Use
  Company Number: None

PATIENT
  Age: 25 Year
  Sex: Female
  Weight: 58.06 kg

DRUGS (1)
  1. MIRENA IUD [Suspect]
     Dates: start: 20121123, end: 20131231

REACTIONS (11)
  - Alopecia [None]
  - Alopecia [None]
  - Alopecia [None]
  - Mood swings [None]
  - Anger [None]
  - Depressed mood [None]
  - Acne [None]
  - Skin discolouration [None]
  - Thrombosis in device [None]
  - Device issue [None]
  - Procedural headache [None]
